FAERS Safety Report 6645615-5 (Version None)
Quarter: 2010Q1

REPORT INFORMATION
  Report Type: 
  Country: None (occurrence: None)
  Receive Date: 20100323
  Receipt Date: 20100318
  Transmission Date: 20100710
  Serious: Yes (Hospitalization)
  Sender: FDA-Public Use
  Company Number: ES-WYE-G05800010

PATIENT
  Age: 74 Year
  Sex: Female

DRUGS (2)
  1. VENLAFAXINE HCL [Suspect]
     Indication: MAJOR DEPRESSION
     Route: 048
     Dates: start: 20051014, end: 20090501
  2. OLMESARTAN MEDOXOMIL [Interacting]
     Indication: MAJOR DEPRESSION
     Route: 048
     Dates: start: 20070501, end: 20090529

REACTIONS (2)
  - DRUG INTERACTION [None]
  - HYPONATRAEMIA [None]
